FAERS Safety Report 5066841-5 (Version None)
Quarter: 2006Q3

REPORT INFORMATION
  Report Type: 
  Country: None (occurrence: None)
  Receive Date: 20060726
  Receipt Date: 20060718
  Transmission Date: 20061208
  Serious: Yes (Death)
  Sender: FDA-Public Use
  Company Number: 056-C5013-06070116

PATIENT
  Age: 70 Year
  Sex: Male

DRUGS (4)
  1. CC-5013 (LENALIDOMIDE) (CAPSULES) [Suspect]
     Indication: MULTIPLE MYELOMA
     Dosage: 25 MG, 1 IN 1 D
     Dates: start: 20060514, end: 20060702
  2. NEXIUM [Suspect]
     Indication: DRUG USE FOR UNKNOWN INDICATION
     Dosage: 40 MG, 1 IN 1 D
  3. NEURONTIN [Concomitant]
  4. EUPRESSYL (URAPIDIL) [Concomitant]

REACTIONS (2)
  - CARDIAC ARREST [None]
  - HYPERKALAEMIA [None]
